FAERS Safety Report 8769006 (Version 1)
Quarter: 2012Q4

REPORT INFORMATION
  Report Type: 
  Country: US (occurrence: US)
  Receive Date: 20120905
  Receipt Date: 20120905
  Transmission Date: 20130627
  Serious: No
  Sender: FDA-Public Use
  Company Number: US-B.I. PHARMACEUTICALS,INC./RIDGEFIELD-2012-BP-21265BP

PATIENT
  Age: 66 Year
  Sex: Male
  Weight: 109 kg

DRUGS (5)
  1. PRADAXA [Suspect]
     Indication: ATRIAL FIBRILLATION
     Route: 048
     Dates: start: 20120801, end: 20120821
  2. EC ASPIRIN [Concomitant]
     Indication: ANTICOAGULANT THERAPY
     Route: 048
  3. ATENOLOL [Concomitant]
     Indication: BLOOD PRESSURE ABNORMAL
     Dosage: (Tablet) Strength: 25 mg; Daily Dose: 50 mg
     Route: 048
     Dates: start: 1994
  4. TIKOSYN [Concomitant]
     Indication: ATRIAL FIBRILLATION
     Dosage: 1000 mg
     Route: 048
     Dates: start: 201005
  5. PRAVASTATIN [Concomitant]
     Indication: BLOOD CHOLESTEROL ABNORMAL
     Dosage: 20 mg
     Route: 048

REACTIONS (1)
  - Atrial fibrillation [Recovered/Resolved]
